FAERS Safety Report 9637553 (Version 2)
Quarter: 2013Q4

REPORT INFORMATION
  Report Type: Not Available
  Country: FR (occurrence: FR)
  Receive Date: 20131022
  Receipt Date: 20131105
  Transmission Date: 20140711
  Serious: Yes (Hospitalization)
  Sender: FDA-Public Use
  Company Number: FR-ASTELLAS-2013EU008871

PATIENT
  Age: 64 Year
  Sex: Male

DRUGS (18)
  1. PROGRAF [Suspect]
     Dosage: 15 MG, BID
     Route: 048
     Dates: start: 20130902, end: 20130902
  2. PROGRAF [Suspect]
     Dosage: 1.5 MG, BID
     Route: 048
  3. PROGRAF [Suspect]
     Dosage: UNK
     Route: 048
     Dates: end: 20130905
  4. PROGRAF [Suspect]
     Dosage: UNK
     Route: 048
     Dates: start: 20130908
  5. AMIKACIN /00391002/ [Suspect]
     Dosage: 1 G, UNKNOWN/D
     Route: 042
     Dates: start: 20130903, end: 20130903
  6. MONOTILDIEM [Concomitant]
     Dosage: UNK
     Route: 065
     Dates: start: 20130828
  7. TENORMINE [Concomitant]
     Dosage: UNK
     Route: 065
     Dates: start: 20130831
  8. CALCIPARINE [Concomitant]
     Indication: ANTICOAGULANT THERAPY
     Dosage: 0.5 UNK, BID
     Route: 065
     Dates: start: 20130828, end: 20130902
  9. COUMADINE [Concomitant]
     Dosage: UNK
     Route: 065
     Dates: start: 20130829
  10. TAZOCILLINE [Concomitant]
     Indication: URINARY TRACT INFECTION
     Dosage: 4 G, TID
     Route: 065
     Dates: start: 20130829, end: 20130903
  11. TAZOCILLINE [Concomitant]
     Indication: PNEUMONIA
  12. CIFLOX                             /00697201/ [Concomitant]
     Dosage: UNK
     Route: 065
     Dates: start: 20130829, end: 20130901
  13. CELLCEPT                           /01275102/ [Concomitant]
     Dosage: UNK
     Route: 065
  14. CORTANCYL [Concomitant]
     Dosage: 5 MG/DAY, UNKNOWN/D
     Route: 065
  15. INEXIUM                            /01479302/ [Concomitant]
     Dosage: UNK
     Route: 065
  16. XATRAL [Concomitant]
     Dosage: UNK
     Route: 065
  17. DITROPAN [Concomitant]
     Dosage: UNK
     Route: 065
  18. ARANESP [Concomitant]
     Dosage: UNK
     Route: 065

REACTIONS (2)
  - Overdose [Recovered/Resolved]
  - Renal failure acute [Recovered/Resolved]
